FAERS Safety Report 13322011 (Version 2)
Quarter: 2017Q2

REPORT INFORMATION
  Report Type: Spontaneous
  Country: US (occurrence: US)
  Receive Date: 20170309
  Receipt Date: 20170421
  Transmission Date: 20170830
  Serious: No
  Sender: FDA-Public Use
  Company Number: US-PFIZER INC-2017093108

PATIENT
  Age: 71 Year
  Sex: Female

DRUGS (9)
  1. LETROZOLE. [Suspect]
     Active Substance: LETROZOLE
     Indication: NEOPLASM MALIGNANT
     Dosage: UNK
  2. VITAMIN D [Concomitant]
     Active Substance: CHOLECALCIFEROL
     Dosage: UNK
  3. CALCIUM [Concomitant]
     Active Substance: CALCIUM
     Dosage: UNK
  4. ASPIRIN 81 [Concomitant]
     Active Substance: ASPIRIN
     Dosage: UNK (LOW DOSE)
  5. ANASTROZOLE. [Concomitant]
     Active Substance: ANASTROZOLE
     Dosage: UNK
  6. EXEMESTANE. [Concomitant]
     Active Substance: EXEMESTANE
     Dosage: UNK
  7. AFINITOR [Concomitant]
     Active Substance: EVEROLIMUS
     Dosage: UNK
  8. TOPROL XL [Concomitant]
     Active Substance: METOPROLOL SUCCINATE
     Dosage: UNK
  9. IBRANCE [Suspect]
     Active Substance: PALBOCICLIB
     Indication: BREAST CANCER FEMALE
     Dosage: 125 MG, CYCLIC (1 CAPSULE FOR 21 DAYS AND 7 OFF)
     Route: 048
     Dates: start: 20161018, end: 20170101

REACTIONS (1)
  - Skin lesion [Unknown]
